FAERS Safety Report 23493729 (Version 1)
Quarter: 2024Q1

REPORT INFORMATION
  Report Type: Spontaneous
  Country: US (occurrence: None)
  Receive Date: 20240206
  Receipt Date: 20240206
  Transmission Date: 20240410
  Serious: Yes (Other)
  Sender: FDA-Public Use
  Company Number: None

PATIENT
  Sex: Female

DRUGS (1)
  1. RINVOQ [Suspect]
     Active Substance: UPADACITINIB
     Route: 048
     Dates: start: 20230303

REACTIONS (6)
  - Pain [None]
  - Loss of personal independence in daily activities [None]
  - Arthralgia [None]
  - Therapy interrupted [None]
  - Visual impairment [None]
  - Scar [None]
